FAERS Safety Report 8600219-X (Version None)
Quarter: 2012Q3

REPORT INFORMATION
  Report Type: 
  Country: None (occurrence: None)
  Receive Date: 20120817
  Receipt Date: 20120807
  Transmission Date: 20120928
  Serious: No
  Sender: FDA-Public Use
  Company Number: US-BIOGENIDEC-2012BI030137

PATIENT
  Sex: Female

DRUGS (1)
  1. TYSABRI [Suspect]
     Indication: MULTIPLE SCLEROSIS
     Route: 042
     Dates: start: 20080910

REACTIONS (5)
  - PRODUCTIVE COUGH [None]
  - SLUGGISHNESS [None]
  - ARTHRALGIA [None]
  - GAIT DISTURBANCE [None]
  - BAND SENSATION [None]
